FAERS Safety Report 8470788-1 (Version None)
Quarter: 2012Q2

REPORT INFORMATION
  Report Type: 
  Country: None (occurrence: None)
  Receive Date: 20120323
  Receipt Date: 20110812
  Transmission Date: 20120825
  Serious: Yes (Hospitalization)
  Sender: FDA-Public Use
  Company Number: 163-21880-11081777

PATIENT
  Age: 66 Year
  Sex: Male

DRUGS (1)
  1. REVLIMID [Suspect]
     Indication: MULTIPLE MYELOMA
     Dosage: 10 MG, DAIYL X 21 DAYS, PO
     Route: 048
     Dates: start: 20100825

REACTIONS (3)
  - CHILLS [None]
  - ABDOMINAL PAIN UPPER [None]
  - DIARRHOEA [None]
